FAERS Safety Report 5660574-X (Version None)
Quarter: 2008Q1

REPORT INFORMATION
  Report Type: 
  Country: None (occurrence: None)
  Receive Date: 20080311
  Receipt Date: 20071116
  Transmission Date: 20080703
  Serious: No
  Sender: FDA-Public Use
  Company Number: US-BAYER-200713814BCC

PATIENT
  Sex: Female
  Weight: 45 kg

DRUGS (3)
  1. ALEVE [Suspect]
     Indication: WHIPLASH INJURY
     Dosage: TOTAL DAILY DOSE: 220 MG  UNIT DOSE: 220 MG
     Route: 048
     Dates: start: 20071114
  2. HOLISTIC [Concomitant]
  3. HERBAL [Concomitant]

REACTIONS (2)
  - GASTROINTESTINAL PAIN [None]
  - POST-TRAUMATIC PAIN [None]
